FAERS Safety Report 14562686 (Version 2)
Quarter: 2020Q4

REPORT INFORMATION
  Report Type: Spontaneous
  Country: NL (occurrence: ES)
  Receive Date: 20180222
  Receipt Date: 20201102
  Transmission Date: 20210113
  Serious: Yes (Hospitalization, Other)
  Sender: FDA-Public Use
  Company Number: ES-ASTELLAS-2018US008609

PATIENT
  Age: 67 Year
  Sex: Male

DRUGS (4)
  1. ADVAGRAF [Suspect]
     Active Substance: TACROLIMUS
     Indication: RENAL TRANSPLANT
     Route: 048
     Dates: start: 20160824, end: 20171121
  2. INVANZ [Interacting]
     Active Substance: ERTAPENEM SODIUM
     Indication: UROSEPSIS
  3. ADVAGRAF [Interacting]
     Active Substance: TACROLIMUS
     Dosage: UNK, UNKNOWN FREQ.
     Route: 065
  4. INVANZ [Interacting]
     Active Substance: ERTAPENEM SODIUM
     Indication: URINARY TRACT INFECTION BACTERIAL
     Route: 042
     Dates: start: 20171106, end: 20171119

REACTIONS (4)
  - Confusional state [Recovered/Resolved]
  - Hallucination, visual [Recovered/Resolved]
  - Muscle fatigue [Recovered/Resolved]
  - Drug interaction [Unknown]

NARRATIVE: CASE EVENT DATE: 20171117
